FAERS Safety Report 9378168 (Version 2)
Quarter: 2013Q3

REPORT INFORMATION
  Report Type: Spontaneous
  Country: GB (occurrence: GB)
  Receive Date: 20130701
  Receipt Date: 20130910
  Transmission Date: 20140515
  Serious: Yes (Hospitalization)
  Sender: FDA-Public Use
  Company Number: GB-GLAXOSMITHKLINE-B0902858A

PATIENT
  Age: 55 Year
  Sex: Male
  Weight: 106 kg

DRUGS (5)
  1. AVANDIA [Suspect]
     Indication: PRODUCT USED FOR UNKNOWN INDICATION
     Dosage: 4MG PER DAY
     Route: 065
  2. METFORMIN [Concomitant]
     Dosage: 850MG TWICE PER DAY
     Route: 065
  3. SIMVASTATIN [Concomitant]
     Dosage: 40MG PER DAY
     Route: 065
  4. RAMIPRIL [Concomitant]
     Dosage: 10MG PER DAY
     Route: 065
  5. DICLOFENAC [Concomitant]
     Route: 065

REACTIONS (1)
  - Acute myocardial infarction [Unknown]
